FAERS Safety Report 16152527 (Version 1)
Quarter: 2019Q2

REPORT INFORMATION
  Report Type: Spontaneous
  Country: IT (occurrence: IT)
  Receive Date: 20190403
  Receipt Date: 20190403
  Transmission Date: 20190711
  Serious: Yes (Hospitalization)
  Sender: FDA-Public Use
  Company Number: IT-ACCORD-117810

PATIENT
  Age: 86 Year
  Sex: Female
  Weight: 78 kg

DRUGS (14)
  1. BRONCOVALEAS [Concomitant]
     Active Substance: ALBUTEROL
     Indication: BRONCHOSPASM
     Route: 055
     Dates: start: 20190105, end: 20190121
  2. FUROSEMIDE. [Suspect]
     Active Substance: FUROSEMIDE
     Indication: OEDEMA
     Route: 048
     Dates: start: 20181220, end: 20190121
  3. ACETYLSALICYLIC ACID [Concomitant]
     Active Substance: ASPIRIN
     Indication: ANGINA PECTORIS
     Route: 048
     Dates: start: 20181220, end: 20190121
  4. CANDESARTAN. [Concomitant]
     Active Substance: CANDESARTAN
     Indication: ESSENTIAL HYPERTENSION
     Route: 048
     Dates: start: 20181220, end: 20190121
  5. RANEXA [Concomitant]
     Active Substance: RANOLAZINE
     Indication: ANGINA PECTORIS
     Route: 048
     Dates: start: 20181220, end: 20190121
  6. SERTRALINE [Concomitant]
     Active Substance: SERTRALINE HYDROCHLORIDE
     Indication: DEPRESSION
     Route: 048
     Dates: start: 20181220, end: 20190121
  7. COLECALCIFEROL [Concomitant]
     Active Substance: CHOLECALCIFEROL
     Indication: VITAMIN D DEFICIENCY
     Route: 048
     Dates: start: 20181220, end: 20190121
  8. TALOFEN [Suspect]
     Active Substance: PROMAZINE HYDROCHLORIDE
     Indication: PSYCHOTIC DISORDER
     Route: 048
     Dates: start: 20181224, end: 20190121
  9. AMBROXOL TECNIGEN [Concomitant]
     Indication: RESPIRATORY DISORDER
     Route: 055
     Dates: start: 20190105, end: 20190121
  10. CRESTOR [Concomitant]
     Active Substance: ROSUVASTATIN CALCIUM
     Indication: HYPERCHOLESTEROLAEMIA
     Route: 048
     Dates: start: 20181220, end: 20190121
  11. PANTOPRAZOLE [Concomitant]
     Active Substance: PANTOPRAZOLE
     Indication: GASTROOESOPHAGEAL REFLUX DISEASE
     Route: 048
     Dates: start: 20181220, end: 20190121
  12. MONTELUKAST TORRENT [Concomitant]
     Indication: ASTHMA
     Route: 048
     Dates: start: 20181220, end: 20190121
  13. MEDROL [Concomitant]
     Active Substance: METHYLPREDNISOLONE
     Indication: ENDOCRINE DISORDER
     Route: 048
     Dates: start: 20190111, end: 20190121
  14. CLENIL? [Concomitant]
     Indication: ASTHMA
     Route: 055
     Dates: start: 20190105, end: 20190121

REACTIONS (1)
  - Balance disorder [Unknown]

NARRATIVE: CASE EVENT DATE: 20190111
